FAERS Safety Report 18506686 (Version 1)
Quarter: 2020Q4

REPORT INFORMATION
  Report Type: Spontaneous
  Country: AU (occurrence: AU)
  Receive Date: 20201116
  Receipt Date: 20201116
  Transmission Date: 20210114
  Serious: Yes (Other)
  Sender: FDA-Public Use
  Company Number: AU-PFIZER INC-2020424193

PATIENT
  Age: 5 Decade
  Sex: Female

DRUGS (8)
  1. MEGA B COMPLEX [Concomitant]
     Dosage: UNK
  2. PREMULAR [Concomitant]
     Dosage: UNK
  3. DIAZEPAM. [Suspect]
     Active Substance: DIAZEPAM
     Dosage: UNK
  4. RABEPRAZOLE [Concomitant]
     Active Substance: RABEPRAZOLE
     Dosage: UNK
  5. CLOPINE [Interacting]
     Active Substance: CLOZAPINE
     Dosage: UNK
  6. CLOPINE [Interacting]
     Active Substance: CLOZAPINE
     Dosage: 500 MG, DAILY
  7. ESCITALOPRAM [Interacting]
     Active Substance: ESCITALOPRAM OXALATE
     Dosage: UNK
  8. CISAPRIDE [Concomitant]
     Active Substance: CISAPRIDE
     Dosage: UNK

REACTIONS (2)
  - Drug interaction [Unknown]
  - Drug level increased [Unknown]
